FAERS Safety Report 20064627 (Version 1)
Quarter: 2021Q4

REPORT INFORMATION
  Report Type: Spontaneous
  Country: US (occurrence: US)
  Receive Date: 20211112
  Receipt Date: 20211112
  Transmission Date: 20220303
  Serious: Yes (Hospitalization, Other)
  Sender: FDA-Public Use
  Company Number: US-Fresenius Medical Care Renal Therapies Group-FMC-2111-001684

PATIENT
  Sex: Male
  Weight: 87.5 kg

DRUGS (4)
  1. DELFLEX [Suspect]
     Active Substance: CALCIUM CHLORIDE\DEXTROSE\MAGNESIUM CHLORIDE\SODIUM CHLORIDE\SODIUM LACTATE
     Indication: End stage renal disease
     Route: 033
  2. LEVOTHYROXINE [Concomitant]
     Active Substance: LEVOTHYROXINE
  3. LEVEMIR [Concomitant]
     Active Substance: INSULIN DETEMIR
  4. INSULIN ASPART [Concomitant]
     Active Substance: INSULIN ASPART

REACTIONS (6)
  - Sepsis [Recovered/Resolved]
  - Encephalopathy [Not Recovered/Not Resolved]
  - Urticaria [Recovering/Resolving]
  - Lip blister [Recovering/Resolving]
  - Hypokalaemia [Unknown]
  - Peritonitis [Recovering/Resolving]

NARRATIVE: CASE EVENT DATE: 20211029
